FAERS Safety Report 9775046 (Version 2)
Quarter: 2016Q4

REPORT INFORMATION
  Report Type: Spontaneous
  Country: US (occurrence: US)
  Receive Date: 20131220
  Receipt Date: 20161014
  Transmission Date: 20170207
  Serious: No
  Sender: FDA-Public Use
  Company Number: US-GLAXOSMITHKLINE-A1043087A

PATIENT
  Sex: Male

DRUGS (4)
  1. AVODART [Suspect]
     Active Substance: DUTASTERIDE
     Indication: PROSTATOMEGALY
     Dosage: 0.5 MG, 1D
     Route: 048
     Dates: end: 2014
  2. RAPAFLO [Concomitant]
     Active Substance: SILODOSIN
  3. LUNESTA [Concomitant]
     Active Substance: ESZOPICLONE
  4. MIRTAZAPINE. [Concomitant]
     Active Substance: MIRTAZAPINE

REACTIONS (2)
  - Blood testosterone decreased [Unknown]
  - Erectile dysfunction [Not Recovered/Not Resolved]
